FAERS Safety Report 13059092 (Version 1)
Quarter: 2016Q4

REPORT INFORMATION
  Report Type: Spontaneous
  Country: US (occurrence: US)
  Receive Date: 20161223
  Receipt Date: 20161223
  Transmission Date: 20170207
  Serious: No
  Sender: FDA-Public Use
  Company Number: US-BAUSCH-BL-2016-012393

PATIENT
  Age: 30 Year
  Sex: Male

DRUGS (3)
  1. XENAZINE [Suspect]
     Active Substance: TETRABENAZINE
     Indication: TOURETTE^S DISORDER
     Dosage: 25 MG TAKEN IN THE MORNING AND AT NOON AND 12.5 MG IN THE EVENING
     Route: 048
     Dates: start: 201407
  2. XENAZINE [Suspect]
     Active Substance: TETRABENAZINE
     Dosage: 37.5 MG TAKEN IN THE MORNING AND AT NOON AND 25 MG IN THE EVENING
     Route: 048
     Dates: start: 20160524
  3. XENAZINE [Suspect]
     Active Substance: TETRABENAZINE
     Route: 048

REACTIONS (2)
  - Weight increased [Unknown]
  - Off label use [Not Recovered/Not Resolved]

NARRATIVE: CASE EVENT DATE: 201407
